FAERS Safety Report 23493267 (Version 5)
Quarter: 2024Q2

REPORT INFORMATION
  Report Type: Spontaneous
  Country: FR (occurrence: FR)
  Receive Date: 20240207
  Receipt Date: 20240606
  Transmission Date: 20240715
  Serious: Yes (Death, Other)
  Sender: FDA-Public Use
  Company Number: FR-002147023-NVSC2024FR025408

PATIENT
  Age: 13 Year
  Sex: Male
  Weight: 48 kg

DRUGS (12)
  1. ILARIS [Suspect]
     Active Substance: CANAKINUMAB
     Indication: Still^s disease
     Dosage: UNK, ONCE/SINGLE
     Route: 065
     Dates: start: 20230330, end: 20230330
  2. ILARIS [Suspect]
     Active Substance: CANAKINUMAB
     Dosage: 150 MG, Q2W
     Route: 065
     Dates: start: 20231114
  3. ANAKINRA [Concomitant]
     Active Substance: ANAKINRA
     Indication: Still^s disease
     Dosage: 100 MG
     Route: 058
     Dates: start: 20231023, end: 20240112
  4. ANAKINRA [Concomitant]
     Active Substance: ANAKINRA
     Dosage: 50 MG
     Route: 058
     Dates: start: 20240113, end: 20240120
  5. SOLU-MEDROL [Concomitant]
     Active Substance: METHYLPREDNISOLONE SODIUM SUCCINATE
     Indication: Product used for unknown indication
     Dosage: 40 MG, DAILY
     Route: 042
     Dates: start: 20231030, end: 20231224
  6. SOLU-MEDROL [Concomitant]
     Active Substance: METHYLPREDNISOLONE SODIUM SUCCINATE
     Dosage: 30 MG, DAILY
     Route: 042
  7. CYCLOSPORINE [Concomitant]
     Active Substance: CYCLOSPORINE
     Indication: Product used for unknown indication
     Dosage: 140 MG, BID
     Route: 042
     Dates: start: 20240111
  8. IMMUNOGLOBULIN [Concomitant]
     Indication: Product used for unknown indication
     Dosage: UNK, QW
     Route: 065
  9. CASPOFUNGIN [Concomitant]
     Active Substance: CASPOFUNGIN
     Indication: Product used for unknown indication
     Dosage: UNK, QW
     Route: 065
  10. CIPROFLOXACIN [Concomitant]
     Active Substance: CIPROFLOXACIN
     Indication: Product used for unknown indication
     Dosage: UNK, QW
     Route: 065
  11. MEROPENEM [Concomitant]
     Active Substance: MEROPENEM
     Indication: Product used for unknown indication
     Dosage: UNK, QW
     Route: 065
  12. BACTRIM [Concomitant]
     Active Substance: SULFAMETHOXAZOLE\TRIMETHOPRIM
     Indication: Product used for unknown indication
     Dosage: UNK, Q3W
     Route: 065

REACTIONS (18)
  - Septic shock [Fatal]
  - Respiratory distress [Fatal]
  - Pulmonary alveolar haemorrhage [Fatal]
  - Pyrexia [Fatal]
  - Pseudomonas test positive [Fatal]
  - Enterococcus test positive [Fatal]
  - Blood culture positive [Fatal]
  - Hepatic cytolysis [Not Recovered/Not Resolved]
  - Interstitial lung disease [Unknown]
  - Septic shock [Recovered/Resolved]
  - Hepatitis [Unknown]
  - Pneumonitis [Unknown]
  - Haemophagocytic lymphohistiocytosis [Unknown]
  - Interleukin level increased [Unknown]
  - Lung disorder [Recovering/Resolving]
  - HLA marker study positive [Unknown]
  - Drug ineffective [Unknown]
  - Off label use [Unknown]

NARRATIVE: CASE EVENT DATE: 20230401
